FAERS Safety Report 4308599-0 (Version None)
Quarter: 2004Q1

REPORT INFORMATION
  Report Type: 
  Country: None (occurrence: None)
  Receive Date: 20040226
  Receipt Date: 20030226
  Transmission Date: 20041129
  Serious: Yes (Hospitalization)
  Sender: FDA-Public Use
  Company Number: 2003148867US

PATIENT
  Sex: Female

DRUGS (4)
  1. CELEBREX [Suspect]
     Indication: OSTEOARTHRITIS
     Dosage: 200 MG, BID, ORAL
     Route: 048
     Dates: start: 20010201, end: 20020301
  2. HYDROCHLOROTHIAZIDE [Concomitant]
  3. ZESTRIL [Concomitant]
  4. BACTRIM [Concomitant]

REACTIONS (8)
  - ASTHENIA [None]
  - CHEST PAIN [None]
  - DIZZINESS [None]
  - FLANK PAIN [None]
  - HYPERTENSION [None]
  - NAUSEA [None]
  - URTICARIA [None]
  - WEIGHT DECREASED [None]
